FAERS Safety Report 9855189 (Version 1)
Quarter: 2014Q1

REPORT INFORMATION
  Report Type: Report from Study
  Country: US (occurrence: US)
  Receive Date: 20140130
  Receipt Date: 20140130
  Transmission Date: 20141002
  Serious: Yes (Death)
  Sender: FDA-Public Use
  Company Number: US-ROCHE-1326833

PATIENT
  Age: 54 Year
  Sex: Male
  Weight: 60.84 kg

DRUGS (14)
  1. AVASTIN [Suspect]
     Indication: LUNG NEOPLASM MALIGNANT
     Route: 042
  2. AVASTIN [Suspect]
     Route: 042
     Dates: start: 20120501
  3. AVASTIN [Suspect]
     Route: 042
     Dates: start: 20120410
  4. TARCEVA [Suspect]
     Indication: LUNG NEOPLASM MALIGNANT
     Route: 065
  5. ALIMTA [Concomitant]
  6. CARBOPLATIN [Concomitant]
     Route: 042
     Dates: start: 20120410
  7. CARBOPLATIN [Concomitant]
     Route: 042
     Dates: start: 20120501
  8. TAXOL [Concomitant]
     Route: 042
     Dates: start: 20120410
  9. TAXOL [Concomitant]
     Dosage: 285 MG
     Route: 042
     Dates: start: 20120501
  10. BENADRYL (UNITED STATES) [Concomitant]
     Route: 042
  11. PEPCID [Concomitant]
     Route: 042
  12. DECADRON [Concomitant]
     Route: 042
  13. ZOFRAN [Concomitant]
     Route: 042
  14. NEULASTA [Concomitant]
     Dosage: ON DAY 2
     Route: 058

REACTIONS (10)
  - Death [Fatal]
  - Disease progression [Unknown]
  - Off label use [Unknown]
  - Osteolysis [Unknown]
  - Adrenal mass [Unknown]
  - Fatigue [Unknown]
  - Decreased appetite [Unknown]
  - Nausea [Unknown]
  - Pruritus [Unknown]
  - Flushing [Unknown]
